FAERS Safety Report 12313699 (Version 3)
Quarter: 2018Q2

REPORT INFORMATION
  Report Type: Spontaneous
  Country: JP (occurrence: JP)
  Receive Date: 20160428
  Receipt Date: 20180606
  Transmission Date: 20180711
  Serious: Yes (Other)
  Sender: FDA-Public Use
  Company Number: JP-JNJFOC-20160422792

PATIENT
  Sex: Male

DRUGS (7)
  1. INFLUENZA VACCINE [Suspect]
     Active Substance: INFLUENZA VIRUS VACCINE
     Indication: PROPHYLAXIS
     Route: 065
  2. PENTASA [Concomitant]
     Active Substance: MESALAMINE
     Route: 048
  3. LAC-B [Concomitant]
     Active Substance: BIFIDOBACTERIUM SPP.
     Route: 048
  4. BENZBROMARONE [Concomitant]
     Active Substance: BENZBROMARONE
     Route: 048
  5. REMICADE [Suspect]
     Active Substance: INFLIXIMAB
     Indication: COLITIS ULCERATIVE
     Route: 042
     Dates: start: 201508
  6. SODIUM CHLORIDE. [Concomitant]
     Active Substance: SODIUM CHLORIDE
     Route: 041
  7. INFLUENZA HA VACCINE [Concomitant]
     Active Substance: INFLUENZA VIRUS VACCINE
     Route: 051

REACTIONS (9)
  - Mucous stools [Unknown]
  - Influenza [Recovered/Resolved]
  - Pollakiuria [Unknown]
  - Haematochezia [Not Recovered/Not Resolved]
  - Defaecation urgency [Unknown]
  - Drug ineffective [Unknown]
  - Colitis ulcerative [Unknown]
  - Stomatitis [Unknown]
  - Blister [Unknown]
